FAERS Safety Report 9986418 (Version 1)
Quarter: 2014Q1

REPORT INFORMATION
  Report Type: Report from Study
  Country: US (occurrence: US)
  Receive Date: 20140307
  Receipt Date: 20140307
  Transmission Date: 20141002
  Serious: No
  Sender: FDA-Public Use
  Company Number: US-ABBVIE-13P-163-1090375-00

PATIENT
  Age: 46 Year
  Sex: Male
  Weight: 74.91 kg

DRUGS (2)
  1. HUMIRA [Suspect]
     Indication: CROHN^S DISEASE
     Dates: start: 20130510
  2. NAPROXEN [Concomitant]
     Indication: INFLAMMATION

REACTIONS (5)
  - Dizziness [Recovered/Resolved]
  - Diarrhoea [Recovered/Resolved]
  - Pallor [Recovered/Resolved]
  - Injection site haemorrhage [Recovered/Resolved]
  - Nausea [Recovered/Resolved]
